FAERS Safety Report 12894162 (Version 3)
Quarter: 2016Q4

REPORT INFORMATION
  Report Type: Report from Study
  Country: PH (occurrence: PH)
  Receive Date: 20161028
  Receipt Date: 20161223
  Transmission Date: 20170207
  Serious: Yes (Other)
  Sender: FDA-Public Use
  Company Number: PH-ALEXION PHARMACEUTICALS INC.-A201608219

PATIENT
  Age: 44 Year
  Sex: Male

DRUGS (3)
  1. SOLIRIS [Suspect]
     Active Substance: ECULIZUMAB
     Indication: PAROXYSMAL NOCTURNAL HAEMOGLOBINURIA
     Dosage: 600 MG, QW FOR 4 WEEKS
     Route: 042
     Dates: start: 20151125
  2. WARFARIN [Concomitant]
     Active Substance: WARFARIN
     Indication: VENA CAVA THROMBOSIS
     Dosage: UNK
     Route: 065
     Dates: start: 20151030
  3. FERROUS SULFATE. [Concomitant]
     Active Substance: FERROUS SULFATE
     Indication: PRODUCT USED FOR UNKNOWN INDICATION
     Dosage: TAB
     Route: 065

REACTIONS (4)
  - Inappropriate schedule of drug administration [Unknown]
  - Haemoglobinuria [Unknown]
  - Medication error [Unknown]
  - Asthenia [Unknown]

NARRATIVE: CASE EVENT DATE: 20160525
